FAERS Safety Report 9815435 (Version 2)
Quarter: 2014Q1

REPORT INFORMATION
  Report Type: Spontaneous
  Country: BR (occurrence: BR)
  Receive Date: 20140114
  Receipt Date: 20140114
  Transmission Date: 20141002
  Serious: Yes (Other)
  Sender: FDA-Public Use
  Company Number: BR-JNJFOC-20130804104

PATIENT
  Age: 60 Year
  Sex: Female

DRUGS (3)
  1. REMICADE [Suspect]
     Indication: RHEUMATOID ARTHRITIS
     Route: 042
  2. REMICADE [Suspect]
     Indication: RHEUMATOID ARTHRITIS
     Route: 042
     Dates: start: 20140107
  3. ARAVA [Concomitant]
     Route: 065

REACTIONS (4)
  - Poor dental condition [Recovered/Resolved]
  - Cholelithiasis [Recovered/Resolved]
  - Musculoskeletal stiffness [Unknown]
  - Pain [Recovering/Resolving]
